FAERS Safety Report 14789731 (Version 8)
Quarter: 2020Q3

REPORT INFORMATION
  Report Type: Spontaneous
  Country: US (occurrence: US)
  Receive Date: 20180423
  Receipt Date: 20200921
  Transmission Date: 20201102
  Serious: Yes (Other)
  Sender: FDA-Public Use
  Company Number: US-PFIZER INC-2018160881

PATIENT
  Age: 83 Year
  Sex: Female
  Weight: 68 kg

DRUGS (4)
  1. XELJANZ [Suspect]
     Active Substance: TOFACITINIB CITRATE
     Indication: RHEUMATOID ARTHRITIS
     Dosage: 5 MG
  2. LEVOTHYROXINE. [Concomitant]
     Active Substance: LEVOTHYROXINE
     Indication: THYROID DISORDER
     Dosage: 112 UG, 1X/DAY (ONE TABLET BY MOUTH EVERYDAY)
     Route: 048
     Dates: start: 20171031
  3. METHOTREXATE. [Concomitant]
     Active Substance: METHOTREXATE
     Dosage: UNK
  4. XELJANZ [Suspect]
     Active Substance: TOFACITINIB CITRATE
     Dosage: 10 MG, 2X/DAY
     Dates: start: 20171031

REACTIONS (7)
  - Myocardial infarction [Unknown]
  - Off label use [Unknown]
  - Nasopharyngitis [Recovered/Resolved]
  - Speech disorder [Recovered/Resolved]
  - Therapeutic product effect incomplete [Recovered/Resolved]
  - Product use issue [Unknown]
  - Pain in jaw [Recovered/Resolved]

NARRATIVE: CASE EVENT DATE: 20171031
